FAERS Safety Report 16073160 (Version 2)
Quarter: 2019Q2

REPORT INFORMATION
  Report Type: Report from Study
  Country: US (occurrence: US)
  Receive Date: 20190314
  Receipt Date: 20190520
  Transmission Date: 20190711
  Serious: Yes (Hospitalization, Disabling, Other)
  Sender: FDA-Public Use
  Company Number: US-BAXTER-2019BAX004857

PATIENT
  Age: 17 Year
  Sex: Male
  Weight: 79.5 kg

DRUGS (41)
  1. PEGASPARGASE [Suspect]
     Active Substance: PEGASPARGASE
     Indication: ACUTE LYMPHOCYTIC LEUKAEMIA
     Dosage: FIRST DOSE
     Route: 042
     Dates: start: 20180810, end: 20180810
  2. METHOTREXATE. [Suspect]
     Active Substance: METHOTREXATE
     Dosage: LAST DOSE PRIOR TO SAE^S OF HYPERTRIGLYCERIDEMIA (FIRST OCCURRENCE), HYPERKALEMIA AND HYPERLIPASEMIA
     Route: 042
     Dates: start: 20181008, end: 20181008
  3. METHOTREXATE. [Suspect]
     Active Substance: METHOTREXATE
     Dosage: LAST DOSE PRIOR TO THE SAE OF HYPERTRIGLYCERIDEMIA (SECOND OCCURRENCE), PANCREATITIS AND TACHYCARDIA
     Route: 042
     Dates: start: 20190128, end: 20190128
  4. ASPARAGINASE [Suspect]
     Active Substance: ASPARAGINASE
     Indication: PRODUCT USED FOR UNKNOWN INDICATION
     Route: 065
  5. CYCLOPHOSPHAMIDE FOR INJECTION, USP [Suspect]
     Active Substance: CYCLOPHOSPHAMIDE
     Dosage: LAST DOSE PRIOR TO THE SAE OF HYPERTRIGLYCERIDEMIA (SECOND OCCURRENCE), PANCREATITIS AND TACHYCARDIA
     Route: 042
  6. INCB018424 [Suspect]
     Active Substance: RUXOLITINIB
     Route: 048
     Dates: start: 20190128
  7. CYTARABINE. [Suspect]
     Active Substance: CYTARABINE
     Indication: ACUTE LYMPHOCYTIC LEUKAEMIA
     Dosage: FIRST DOSE
     Route: 042
     Dates: start: 20181023, end: 20181023
  8. VINCRISTINE [Suspect]
     Active Substance: VINCRISTINE
     Indication: ACUTE LYMPHOCYTIC LEUKAEMIA
     Dosage: FIRST DOSE
     Route: 042
     Dates: start: 20180810, end: 20180810
  9. VINCRISTINE [Suspect]
     Active Substance: VINCRISTINE
     Route: 042
     Dates: start: 20181102, end: 20181102
  10. PEGASPARGASE [Suspect]
     Active Substance: PEGASPARGASE
     Dosage: LAST DOSE PRIOR TO SAE^S HYPERTRIGLYCERIDEMIA (FIRST OCCURRENCE), HYPERKALEMIA AND HYPERLIPASEMIA
     Route: 042
     Dates: start: 20181001, end: 20181001
  11. ONDANSETRON [Concomitant]
     Active Substance: ONDANSETRON
     Indication: NAUSEA
     Dosage: AS REQUIRED
     Route: 048
     Dates: start: 20181030
  12. PHENERGAN [Concomitant]
     Active Substance: PROMETHAZINE HYDROCHLORIDE
     Indication: VOMITING
  13. MERCAPTOPURINE. [Concomitant]
     Active Substance: MERCAPTOPURINE
     Indication: PRODUCT USED FOR UNKNOWN INDICATION
     Dosage: 2 AND HALF TABLETS 4 DAYS PER WEEK, THEN TAKE 2 TABLETS 3 DAYS PER WEEK
     Route: 048
  14. PEGASPARGASE [Suspect]
     Active Substance: PEGASPARGASE
     Dosage: DOSE RE-INTRODUCED
     Route: 042
     Dates: start: 20181116, end: 20181116
  15. ENOXAPARIN [Concomitant]
     Active Substance: ENOXAPARIN
     Indication: DEEP VEIN THROMBOSIS
     Route: 058
  16. POLYETHYLENE GLYCOL 3350. [Concomitant]
     Active Substance: POLYETHYLENE GLYCOL 3350
     Indication: CONSTIPATION
     Dosage: ONE PACKET, QD, AS REQUIRED
     Route: 048
  17. SULFAMETHOXAZOLE/TRIMETHOPRIM [Concomitant]
     Active Substance: SULFAMETHOXAZOLE\TRIMETHOPRIM
     Indication: PNEUMOCYSTIS JIROVECII PNEUMONIA
     Dosage: 400 MG-80 MG ONE TABLET BID ON FRIDAYS, SATURDAYS AND SUNDAYS
     Route: 048
  18. CYCLOPHOSPHAMIDE FOR INJECTION, USP [Suspect]
     Active Substance: CYCLOPHOSPHAMIDE
     Dosage: DOSE RE-INTRODUCED
     Route: 042
     Dates: start: 20181116, end: 20181116
  19. VINCRISTINE [Suspect]
     Active Substance: VINCRISTINE
     Dosage: DOSE RE-INTRODUCED
     Route: 042
     Dates: start: 20181116, end: 20181116
  20. CYTARABINE. [Suspect]
     Active Substance: CYTARABINE
     Dosage: LAST DOSE PRIOR TO THE SAE^S HYPERTRIGLYCERIDEMIA (FIRST OCCURRENCE), HYPERKALEMIA AND HYPERLIPASEMI
     Route: 042
     Dates: start: 20181025, end: 20181025
  21. ENOXAPARIN [Concomitant]
     Active Substance: ENOXAPARIN
     Route: 065
     Dates: start: 20180810
  22. LIDOCAINE/PRILOCAINE [Concomitant]
     Active Substance: LIDOCAINE\PRILOCAINE
     Indication: PRODUCT USED FOR UNKNOWN INDICATION
     Route: 065
  23. DEXTROSE. [Concomitant]
     Active Substance: DEXTROSE
     Indication: DEEP VEIN THROMBOSIS
     Dosage: 125 ML/M2/HR
     Route: 042
  24. CYCLOPHOSPHAMIDE FOR INJECTION, USP [Suspect]
     Active Substance: CYCLOPHOSPHAMIDE
     Indication: ACUTE LYMPHOCYTIC LEUKAEMIA
     Dosage: FIRST DOSE
     Route: 042
     Dates: start: 20180827, end: 20180827
  25. CYCLOPHOSPHAMIDE FOR INJECTION, USP [Suspect]
     Active Substance: CYCLOPHOSPHAMIDE
     Dosage: LAST DOSE PRIOR TO THE SAE^S HYPERTRIGLYCERIDEMIA (FIRST OCCURRENCE), HYPERKALEMIA AND HYPERLIPASEMI
     Route: 042
     Dates: start: 20181015, end: 20181015
  26. INCB018424 [Suspect]
     Active Substance: RUXOLITINIB
     Dosage: DOSE RE-INTRODUCED
     Route: 048
     Dates: start: 20181116, end: 20181116
  27. VINCRISTINE [Suspect]
     Active Substance: VINCRISTINE
     Dosage: LAST DOSE PRIOR TO THE SAE OF HYPERTRIGLYCERIDEMIA (SECOND OCCURRENCE), PANCREATITIS AND TACHYCARDIA
     Route: 042
     Dates: start: 20190204, end: 20190204
  28. PHENERGAN [Concomitant]
     Active Substance: PROMETHAZINE HYDROCHLORIDE
     Indication: NAUSEA
     Dosage: 25 MG TABLET QID PRN
     Route: 065
  29. INCB018424 [Suspect]
     Active Substance: RUXOLITINIB
     Dosage: LAST DOSE PRIOR TO THE SAE^S HYPERTRIGLYCERIDEMIA (FIRST OCCURRENCE), HYPERKALEMIA AND HYPERLIPASEMI
     Route: 048
     Dates: start: 20181028, end: 20181028
  30. CYTARABINE. [Suspect]
     Active Substance: CYTARABINE
     Dosage: LAST DOSE PRIOR TO THE SAE OF HYPERTRIGLYCERIDEMIA (SECOND OCCURRENCE), PANCREATITIS AND TACHYCARDIA
     Route: 042
  31. VINCRISTINE [Suspect]
     Active Substance: VINCRISTINE
     Dosage: LAST DOSE PRIOR TO SAE^S OF HYPERTRIGLYCERIDEMIA (FIRST OCCURRENCE), HYPERKALEMIA AND HYPERLIPASEMIA
     Route: 042
     Dates: start: 20181008, end: 20181008
  32. PEGASPARGASE [Suspect]
     Active Substance: PEGASPARGASE
     Dosage: LAST DOSE PRIOR TO THE SAE OF HYPERTRIGLYCERIDEMIA (SECOND OCCURRENCE), PANCREATITIS AND TACHYCARDIA
     Route: 042
     Dates: start: 20190131, end: 20190131
  33. METHOTREXATE. [Suspect]
     Active Substance: METHOTREXATE
     Indication: ACUTE LYMPHOCYTIC LEUKAEMIA
     Dosage: FIRST DOSE
     Route: 042
     Dates: start: 20180818, end: 20180818
  34. CALCIUM CARBONATE. [Concomitant]
     Active Substance: CALCIUM CARBONATE
     Indication: PRODUCT USED FOR UNKNOWN INDICATION
     Route: 048
     Dates: start: 20181030
  35. VITAMIN D3 [Concomitant]
     Active Substance: CHOLECALCIFEROL
     Indication: PRODUCT USED FOR UNKNOWN INDICATION
     Dosage: 2000 UNIT, TABLET
     Route: 048
     Dates: start: 20181030
  36. LANSOPRAZOLE. [Concomitant]
     Active Substance: LANSOPRAZOLE
     Indication: PRODUCT USED FOR UNKNOWN INDICATION
     Route: 048
     Dates: start: 20181030
  37. LANSOPRAZOLE. [Concomitant]
     Active Substance: LANSOPRAZOLE
     Route: 048
     Dates: start: 20190128
  38. INCB018424 [Suspect]
     Active Substance: RUXOLITINIB
     Indication: ACUTE LYMPHOCYTIC LEUKAEMIA
     Dosage: FIRST DOSE
     Route: 048
     Dates: start: 20181015, end: 20181015
  39. INCB018424 [Suspect]
     Active Substance: RUXOLITINIB
     Dosage: LAST DOSE PRIOR TO THE SAE OF HYPERTRIGLYCERIDEMIA (SECOND OCCURRENCE), PANCREATITIS AND TACHYCARDIA
     Route: 048
     Dates: start: 20190210, end: 20190210
  40. METHOTREXATE. [Suspect]
     Active Substance: METHOTREXATE
     Dosage: DOSE RE-INTRODUCED
     Route: 042
     Dates: start: 20181116, end: 20181116
  41. DEXTROSE. [Concomitant]
     Active Substance: DEXTROSE
     Route: 065
     Dates: start: 20180808

REACTIONS (6)
  - Hyperlipasaemia [Recovered/Resolved]
  - Tachycardia [Recovered/Resolved]
  - Hyperkalaemia [Recovered/Resolved]
  - Hypertriglyceridaemia [Recovered/Resolved]
  - Pancreatitis [Recovering/Resolving]
  - Hypertriglyceridaemia [Recovering/Resolving]

NARRATIVE: CASE EVENT DATE: 20181029
